FAERS Safety Report 15551327 (Version 2)
Quarter: 2018Q4

REPORT INFORMATION
  Report Type: Report from Study
  Country: PL (occurrence: PL)
  Receive Date: 20181025
  Receipt Date: 20181026
  Transmission Date: 20190205
  Serious: Yes (Life-Threatening, Hospitalization, Other)
  Sender: FDA-Public Use
  Company Number: PL-ASTRAZENECA-2018SF37784

PATIENT
  Age: 23657 Day
  Sex: Male

DRUGS (17)
  1. AZD6140 [Suspect]
     Active Substance: TICAGRELOR
     Indication: CARDIOVASCULAR EVENT PROPHYLAXIS
     Route: 048
     Dates: start: 20160303, end: 20181015
  2. BETASERC [Concomitant]
     Active Substance: BETAHISTINE
     Indication: DIZZINESS
     Route: 048
     Dates: start: 20171124
  3. METFORMAX [Concomitant]
     Active Substance: METFORMIN HYDROCHLORIDE
     Indication: DIABETES MELLITUS
     Route: 048
     Dates: start: 20171124
  4. VALSARTAN. [Concomitant]
     Active Substance: VALSARTAN
     Indication: HYPERTENSION
     Route: 048
     Dates: start: 20171124
  5. INSULIN GLARGINE [Concomitant]
     Active Substance: INSULIN GLARGINE
     Indication: DIABETES MELLITUS
     Route: 058
     Dates: start: 20180108
  6. CAPTOPRIL. [Concomitant]
     Active Substance: CAPTOPRIL
     Indication: HYPERTENSION
     Dosage: AS REQUIRED
     Route: 048
     Dates: start: 20180108
  7. BISOPROLOL [Concomitant]
     Active Substance: BISOPROLOL
     Indication: HYPERTENSION
     Route: 048
  8. ESOMEPRAZOLE. [Concomitant]
     Active Substance: ESOMEPRAZOLE MAGNESIUM
     Indication: GASTRIC DISORDER
     Route: 048
     Dates: start: 20180120
  9. VINPOCETINE [Concomitant]
     Active Substance: VINPOCETINE
     Indication: LABYRINTHITIS
     Route: 048
     Dates: start: 20180108
  10. ASPIRIN. [Concomitant]
     Active Substance: ASPIRIN
     Indication: CORONARY ARTERY DISEASE
     Route: 048
  11. ACARBOSE. [Concomitant]
     Active Substance: ACARBOSE
     Indication: DIABETES MELLITUS
     Route: 048
  12. LECALPIN [Concomitant]
     Indication: HYPERTENSION
     Route: 048
     Dates: start: 20171124
  13. DAPAGLIFLOZIN. [Concomitant]
     Active Substance: DAPAGLIFLOZIN
     Indication: DIABETES MELLITUS
     Route: 048
     Dates: start: 20180108
  14. NILOGRIN [Concomitant]
     Indication: CEREBROVASCULAR DISORDER
     Route: 048
     Dates: start: 20171129
  15. INDAPAMIDE. [Concomitant]
     Active Substance: INDAPAMIDE
     Indication: HYPERTENSION
     Dosage: AS REQUIRED
     Route: 048
     Dates: start: 20180108
  16. ATORVASTATIN [Concomitant]
     Active Substance: ATORVASTATIN
     Indication: DYSLIPIDAEMIA
     Route: 048
     Dates: start: 20171124
  17. INSULIN ASPART [Concomitant]
     Active Substance: INSULIN ASPART
     Indication: DIABETES MELLITUS
     Route: 058
     Dates: start: 20180108

REACTIONS (1)
  - Post-traumatic headache [Recovered/Resolved]

NARRATIVE: CASE EVENT DATE: 20181009
